FAERS Safety Report 6226929-X (Version None)
Quarter: 2009Q2

REPORT INFORMATION
  Report Type: 
  Country: None (occurrence: None)
  Receive Date: 20090612
  Receipt Date: 20090526
  Transmission Date: 20091009
  Serious: No
  Sender: FDA-Public Use
  Company Number: US-ABBOTT-09P-163-0575531-00

PATIENT
  Sex: Female
  Weight: 68.1 kg

DRUGS (3)
  1. HUMIRA [Suspect]
     Indication: PSORIATIC ARTHROPATHY
     Route: 058
     Dates: start: 20080101, end: 20090201
  2. HUMIRA [Suspect]
     Dates: start: 20090301, end: 20090301
  3. IBUPROFEN [Concomitant]
     Indication: DRUG USE FOR UNKNOWN INDICATION
     Dates: start: 20090215

REACTIONS (6)
  - ARTHRALGIA [None]
  - INTENTIONAL DRUG MISUSE [None]
  - JOINT SWELLING [None]
  - PAIN [None]
  - PSORIATIC ARTHROPATHY [None]
  - RASH [None]
